FAERS Safety Report 7850077-6 (Version None)
Quarter: 2011Q4

REPORT INFORMATION
  Report Type: 
  Country: None (occurrence: None)
  Receive Date: 20111026
  Receipt Date: 20111019
  Transmission Date: 20120403
  Serious: Yes (Other)
  Sender: FDA-Public Use
  Company Number: CA-JNJFOC-20111010153

PATIENT
  Sex: Female

DRUGS (1)
  1. SIMPONI [Suspect]
     Indication: JUVENILE ARTHRITIS
     Route: 058
     Dates: start: 20110825

REACTIONS (1)
  - LOWER RESPIRATORY TRACT INFECTION [None]
